FAERS Safety Report 7589205-9 (Version None)
Quarter: 2011Q3

REPORT INFORMATION
  Report Type: 
  Country: None (occurrence: None)
  Receive Date: 20110705
  Receipt Date: 20100528
  Transmission Date: 20111222
  Serious: No
  Sender: FDA-Public Use
  Company Number: US-BAYER-201024670NA

PATIENT
  Sex: Female

DRUGS (2)
  1. MIRENA [Suspect]
     Indication: CONTRACEPTION
     Dosage: 20 MCG/24HR, CONT
     Route: 015
     Dates: start: 20100525
  2. NAPROXEN (ALEVE) [Concomitant]
     Indication: PAIN

REACTIONS (3)
  - AMENORRHOEA [None]
  - ABDOMINAL PAIN LOWER [None]
  - WEIGHT INCREASED [None]
